FAERS Safety Report 9065845 (Version 1)
Quarter: 2013Q1

REPORT INFORMATION
  Report Type: Report from Study
  Country: IT (occurrence: IT)
  Receive Date: 20130214
  Receipt Date: 20130214
  Transmission Date: 20140127
  Serious: Yes (Life-Threatening, Hospitalization)
  Sender: FDA-Public Use
  Company Number: PHHY2013IT012572

PATIENT
  Age: 8 None
  Sex: Female
  Weight: 25 kg

DRUGS (1)
  1. ICL670A [Suspect]
     Dosage: 625 MG, DAILY
     Route: 048
     Dates: start: 20080823, end: 20130204

REACTIONS (3)
  - Ketonuria [Unknown]
  - Pyrexia [Unknown]
  - Proteinuria [Unknown]
